FAERS Safety Report 7475114-2 (Version None)
Quarter: 2011Q1

REPORT INFORMATION
  Report Type: 
  Country: None (occurrence: None)
  Receive Date: 20110302
  Receipt Date: 20101104
  Transmission Date: 20110831
  Serious: No
  Sender: FDA-Public Use
  Company Number: 163-21880-08081158

PATIENT
  Sex: Male

DRUGS (2)
  1. DEXAMETHASONE [Concomitant]
  2. REVLIMID [Suspect]
     Indication: MULTIPLE MYELOMA
     Dosage: 5 MG, DIALY X 4, PO
     Route: 048
     Dates: start: 20100219

REACTIONS (4)
  - HYPOAESTHESIA [None]
  - FATIGUE [None]
  - HEARING IMPAIRED [None]
  - VISUAL IMPAIRMENT [None]
